FAERS Safety Report 8788202 (Version 1)
Quarter: 2012Q4

REPORT INFORMATION
  Report Type: 
  Country: US (occurrence: US)
  Receive Date: 20120914
  Receipt Date: 20120914
  Transmission Date: 20130627
  Serious: No
  Sender: FDA-Public Use
  Company Number: US-VERTEX PHARMACEUTICAL INC.-AE-2012-011538

PATIENT
  Sex: Female
  Weight: 65.91 kg

DRUGS (1)
  1. INCIVEK [Suspect]
     Indication: HEPATITIS C
     Route: 048

REACTIONS (4)
  - Dyspnoea [Unknown]
  - Alopecia [Unknown]
  - Asthenia [Unknown]
  - Red blood cell count decreased [Unknown]
